FAERS Safety Report 4762008-6 (Version None)
Quarter: 2005Q3

REPORT INFORMATION
  Report Type: 
  Country: None (occurrence: None)
  Receive Date: 20050831
  Receipt Date: 20050617
  Transmission Date: 20060218
  Serious: Yes (Hospitalization)
  Sender: FDA-Public Use
  Company Number: PHEH2005US02714

PATIENT
  Age: 51 Year
  Sex: Male
  Weight: 87.6 kg

DRUGS (3)
  1. ENABLEX [Suspect]
     Indication: HYPERTONIC BLADDER
     Dosage: 15 MG, QD
     Dates: start: 20050223, end: 20050301
  2. AVANDIA [Concomitant]
  3. LEVAQUIN [Concomitant]

REACTIONS (7)
  - CHILLS [None]
  - ERYTHEMA [None]
  - INFLUENZA [None]
  - NAUSEA [None]
  - OCULAR HYPERAEMIA [None]
  - PHARYNGOLARYNGEAL PAIN [None]
  - PYREXIA [None]
